FAERS Safety Report 7529227-7 (Version None)
Quarter: 2011Q2

REPORT INFORMATION
  Report Type: 
  Country: None (occurrence: None)
  Receive Date: 20110607
  Receipt Date: 20110526
  Transmission Date: 20111010
  Serious: Yes (Hospitalization)
  Sender: FDA-Public Use
  Company Number: US-JNJFOC-20110503906

PATIENT
  Age: 34 Year
  Sex: Female
  Weight: 58.97 kg

DRUGS (7)
  1. MICONAZOLE NITRATE [Suspect]
     Route: 061
     Dates: start: 20110407, end: 20110407
  2. DEPAKOTE ER [Concomitant]
     Indication: DRUG THERAPY
     Route: 065
     Dates: start: 20030101
  3. EFFEXOR [Concomitant]
     Indication: ANXIETY
     Route: 065
     Dates: start: 20030101
  4. EFFEXOR [Concomitant]
     Indication: DEPRESSION
     Route: 065
     Dates: start: 20030101
  5. MICONAZOLE NITRATE [Suspect]
     Route: 067
  6. MICONAZOLE NITRATE [Suspect]
     Indication: FUNGAL INFECTION
     Route: 067
     Dates: start: 20110407, end: 20110407
  7. MICONAZOLE NITRATE [Suspect]
     Route: 061

REACTIONS (3)
  - PAIN [None]
  - NAUSEA [None]
  - VOMITING [None]
